FAERS Safety Report 26167777 (Version 1)
Quarter: 2025Q4

REPORT INFORMATION
  Report Type: Report from Study
  Country: TH (occurrence: TH)
  Receive Date: 20251217
  Receipt Date: 20251217
  Transmission Date: 20260118
  Serious: Yes (Other)
  Sender: EXELIXIS
  Company Number: TH-IPSEN Group, Research and Development-2025-30432

PATIENT
  Age: 69 Year
  Sex: Male

DRUGS (2)
  1. CABOMETYX [Suspect]
     Active Substance: CABOZANTINIB S-MALATE
     Indication: Hepatocellular carcinoma
     Dosage: 60 MG, QD
     Route: 048
     Dates: start: 20251014
  2. CABOMETYX [Suspect]
     Active Substance: CABOZANTINIB S-MALATE
     Dosage: 60 MG FOR TWO CONSECUTIVE DAYS FOLLOWED BY ONE DAY OFF
     Route: 048

REACTIONS (8)
  - Food intolerance [Unknown]
  - Condition aggravated [Recovering/Resolving]
  - Inflammation [Recovering/Resolving]
  - Gait inability [Recovering/Resolving]
  - Blister [Recovering/Resolving]
  - Hypothyroidism [Unknown]
  - Pain [Recovering/Resolving]
  - Off label use [Unknown]

NARRATIVE: CASE EVENT DATE: 20251124
